FAERS Safety Report 5774340-8 (Version None)
Quarter: 2008Q2

REPORT INFORMATION
  Report Type: 
  Country: None (occurrence: None)
  Receive Date: 20080616
  Receipt Date: 20080609
  Transmission Date: 20081010
  Serious: Yes (Other)
  Sender: FDA-Public Use
  Company Number: PHRM2008FR01416

PATIENT
  Sex: Female

DRUGS (1)
  1. EXELON [Suspect]
     Indication: DEMENTIA ALZHEIMER'S TYPE
     Dosage: 3 MG, QD
     Route: 048

REACTIONS (5)
  - FALL [None]
  - FATIGUE [None]
  - NAUSEA [None]
  - TACHYCARDIA [None]
  - WEIGHT DECREASED [None]
